FAERS Safety Report 20186606 (Version 1)
Quarter: 2021Q4

REPORT INFORMATION
  Report Type: Spontaneous
  Country: DE (occurrence: DE)
  Receive Date: 20211215
  Receipt Date: 20211215
  Transmission Date: 20220303
  Serious: Yes (Other)
  Sender: FDA-Public Use
  Company Number: DE-TEVA-2021-DE-1988266

PATIENT
  Age: 8 Decade
  Sex: Male
  Weight: 70 kg

DRUGS (1)
  1. PRIMIDONE [Suspect]
     Active Substance: PRIMIDONE
     Dosage: 4 DOSAGE FORMS DAILY;
     Route: 065
     Dates: start: 202108, end: 202108

REACTIONS (3)
  - Mental impairment [Recovered/Resolved]
  - Aggression [Recovered/Resolved]
  - Stubbornness [Recovered/Resolved]

NARRATIVE: CASE EVENT DATE: 20210801
